FAERS Safety Report 4379722-7 (Version None)
Quarter: 2004Q2

REPORT INFORMATION
  Report Type: 
  Country: None (occurrence: None)
  Receive Date: 20040614
  Receipt Date: 20040526
  Transmission Date: 20050107
  Serious: Yes (Disabling)
  Sender: FDA-Public Use
  Company Number: 8006260

PATIENT
  Age: 80 Year
  Sex: Male

DRUGS (11)
  1. KEPPRA [Suspect]
     Indication: CONVULSION
     Dosage: 125 MG 2/D PO
     Route: 048
     Dates: start: 20021023
  2. KEPPRA [Suspect]
     Indication: CONVULSION
     Dosage: 1500 MG 2/D PO
     Route: 048
     Dates: start: 20021201
  3. AGGRENOX [Concomitant]
  4. ZOCOR [Concomitant]
  5. FLOMAX [Concomitant]
  6. BUMEX [Concomitant]
  7. VITAMIN E [Concomitant]
  8. VITAMIN C [Concomitant]
  9. PROSCAR [Concomitant]
  10. TIMOLOL MALEATE [Concomitant]
  11. NITROPASTE [Concomitant]

REACTIONS (1)
  - BLINDNESS UNILATERAL [None]
